FAERS Safety Report 7112077-3 (Version None)
Quarter: 2010Q4

REPORT INFORMATION
  Report Type: 
  Country: None (occurrence: None)
  Receive Date: 20101119
  Receipt Date: 20101109
  Transmission Date: 20110411
  Serious: Yes (Hospitalization, Other)
  Sender: FDA-Public Use
  Company Number: GB-US-EMD SERONO, INC.-7019239

PATIENT
  Sex: Female
  Weight: 66 kg

DRUGS (2)
  1. REBIF [Suspect]
     Indication: PRODUCT USED FOR UNKNOWN INDICATION
     Dates: start: 20090201
  2. REBIF [Suspect]
     Dates: start: 20100929

REACTIONS (6)
  - FALL [None]
  - HYPOAESTHESIA [None]
  - MOBILITY DECREASED [None]
  - MOVEMENT DISORDER [None]
  - OSTEOARTHRITIS [None]
  - VOMITING [None]
